FAERS Safety Report 15791381 (Version 2)
Quarter: 2019Q1

REPORT INFORMATION
  Report Type: Report from Study
  Country: US (occurrence: US)
  Receive Date: 20190104
  Receipt Date: 20190116
  Transmission Date: 20190417
  Serious: Yes (Other)
  Sender: FDA-Public Use
  Company Number: US-JAZZ-2018-US-018690

PATIENT
  Age: 38 Year
  Sex: Female

DRUGS (4)
  1. XYREM [Suspect]
     Active Substance: SODIUM OXYBATE
     Dosage: 1.5 G, SECOND NIGHTLY DOSE
     Route: 048
     Dates: start: 201812, end: 201812
  2. XYREM [Suspect]
     Active Substance: SODIUM OXYBATE
     Dosage: 3.5 G, SECOND NIGHTLY DOSE
     Route: 048
     Dates: start: 201812
  3. XYREM [Suspect]
     Active Substance: SODIUM OXYBATE
     Dosage: 4.5 G, FIRST NIGHTLY DOSE
     Route: 048
     Dates: start: 201812
  4. XYREM [Suspect]
     Active Substance: SODIUM OXYBATE
     Indication: NARCOLEPSY
     Dosage: 2.5 G, FIRST NIGHTLY DOSE
     Route: 048
     Dates: start: 201812, end: 201812

REACTIONS (5)
  - Headache [Not Recovered/Not Resolved]
  - Drug titration error [Unknown]
  - Gastric bypass [Unknown]
  - Hypoaesthesia oral [Recovered/Resolved]
  - Migraine [Unknown]

NARRATIVE: CASE EVENT DATE: 201812
